FAERS Safety Report 4603863-X (Version None)
Quarter: 2005Q1

REPORT INFORMATION
  Report Type: 
  Country: None (occurrence: None)
  Receive Date: 20050308
  Receipt Date: 20050222
  Transmission Date: 20050727
  Serious: Yes (Hospitalization)
  Sender: FDA-Public Use
  Company Number: 2004BI000943

PATIENT
  Age: 29 Year
  Sex: Female

DRUGS (7)
  1. AVONEX [Suspect]
     Indication: MULTIPLE SCLEROSIS
     Dosage: 30 UG;QW; IM
     Route: 030
     Dates: start: 20041126
  2. BACLOFEN [Concomitant]
  3. NEURONTIN [Concomitant]
  4. PREVACID [Concomitant]
  5. HYDROCHLOROTHIAZIDE [Concomitant]
  6. WELLBUTRIN [Concomitant]
  7. LEXAPRO [Concomitant]

REACTIONS (3)
  - APPENDICECTOMY [None]
  - GALLBLADDER DISORDER [None]
  - PANCREATIC CYST [None]
